FAERS Safety Report 16797365 (Version 3)
Quarter: 2021Q1

REPORT INFORMATION
  Report Type: Spontaneous
  Country: US (occurrence: US)
  Receive Date: 20190912
  Receipt Date: 20210318
  Transmission Date: 20210419
  Serious: Yes (Other)
  Sender: FDA-Public Use
  Company Number: US-AMGEN-USASP2019144127

PATIENT
  Age: 87 Year
  Sex: Female

DRUGS (1)
  1. ENBREL [Suspect]
     Active Substance: ETANERCEPT
     Indication: RHEUMATOID ARTHRITIS
     Dosage: 50 MILLIGRAM, QWK
     Route: 065
     Dates: start: 2015

REACTIONS (9)
  - Macular degeneration [Not Recovered/Not Resolved]
  - Device issue [Unknown]
  - Malaise [Unknown]
  - Catheterisation cardiac [Unknown]
  - Aortic valve replacement [Unknown]
  - Wrong technique in product usage process [Unknown]
  - Drug dose omission by device [Unknown]
  - Glaucoma [Unknown]
  - Investigation [Unknown]

NARRATIVE: CASE EVENT DATE: 201908
